FAERS Safety Report 6301238-9 (Version None)
Quarter: 2009Q3

REPORT INFORMATION
  Report Type: 
  Country: None (occurrence: None)
  Receive Date: 20090807
  Receipt Date: 20090727
  Transmission Date: 20100115
  Serious: Yes (Hospitalization)
  Sender: FDA-Public Use
  Company Number: EMADSS2003001340

PATIENT
  Age: 65 Year
  Sex: Female

DRUGS (8)
  1. REMICADE [Suspect]
     Route: 042
  2. REMICADE [Suspect]
     Indication: RHEUMATOID ARTHRITIS
     Route: 042
  3. METHOTREXATE [Concomitant]
     Indication: RHEUMATOID ARTHRITIS
     Route: 065
     Dates: start: 19960424, end: 20030211
  4. CORTICOSTEROID NOS [Concomitant]
     Indication: RHEUMATOID ARTHRITIS
     Route: 065
     Dates: start: 19960101
  5. OMEPRAZOLE [Concomitant]
  6. ACFOL [Concomitant]
  7. NONSTEROIDAL ANTI-INFLAMMATORY AGENT NOS [Concomitant]
  8. RIFAMPICIN [Concomitant]

REACTIONS (1)
  - RENAL TUBERCULOSIS [None]
